FAERS Safety Report 5752973-2 (Version None)
Quarter: 2008Q2

REPORT INFORMATION
  Report Type: 
  Country: None (occurrence: None)
  Receive Date: 20080529
  Receipt Date: 20080527
  Transmission Date: 20081010
  Serious: Yes (Life-Threatening, Disabling, Other)
  Sender: FDA-Public Use
  Company Number: GB-MERCK-0805GBR00145

PATIENT
  Age: 54 Year
  Sex: Female
  Weight: 100 kg

DRUGS (7)
  1. ZETIA [Suspect]
     Indication: BLOOD CHOLESTEROL INCREASED
     Route: 048
     Dates: start: 20080101, end: 20080401
  2. AMITRIPTYLINE HYDROCHLORIDE [Concomitant]
     Indication: PAIN
     Route: 065
  3. BEZALIP [Concomitant]
     Indication: LIPIDS INCREASED
     Route: 048
  4. CARNITINE [Concomitant]
     Route: 065
  5. UBIDECARENONE [Concomitant]
     Route: 065
  6. MAXEPA [Concomitant]
     Indication: LIPIDS INCREASED
     Route: 048
  7. NIACINAMIDE [Concomitant]
     Route: 065

REACTIONS (4)
  - AGGRESSION [None]
  - DEPRESSION [None]
  - FATIGUE [None]
  - SUICIDAL IDEATION [None]
